FAERS Safety Report 20308685 (Version 3)
Quarter: 2025Q2

REPORT INFORMATION
  Report Type: Spontaneous
  Country: CN (occurrence: CN)
  Receive Date: 20220107
  Receipt Date: 20250408
  Transmission Date: 20250717
  Serious: Yes (Life-Threatening, Hospitalization, Other)
  Sender: PFIZER
  Company Number: CN-PFIZER INC-202200002633

PATIENT
  Age: 41 Year
  Sex: Female

DRUGS (11)
  1. METHYLPREDNISOLONE SODIUM SUCCINATE [Suspect]
     Active Substance: METHYLPREDNISOLONE SODIUM SUCCINATE
     Indication: Immunosuppression
     Dosage: 40 MG, 1X/DAY
     Route: 041
  2. METHYLPREDNISOLONE SODIUM SUCCINATE [Suspect]
     Active Substance: METHYLPREDNISOLONE SODIUM SUCCINATE
     Indication: Anti-glomerular basement membrane disease
     Dosage: 1000 MG, 1X/DAY PULSE DOSE, 3 DAYS
     Route: 042
  3. METHYLPREDNISOLONE SODIUM SUCCINATE [Suspect]
     Active Substance: METHYLPREDNISOLONE SODIUM SUCCINATE
     Indication: Glomerulonephritis rapidly progressive
     Dosage: 40 MG, 1X/DAY MAINTENANCE
     Route: 042
  4. METHYLPREDNISOLONE SODIUM SUCCINATE [Suspect]
     Active Substance: METHYLPREDNISOLONE SODIUM SUCCINATE
     Indication: IgA nephropathy
     Dosage: 30 MG, 1X/DAY
     Route: 042
  5. RITUXIMAB [Suspect]
     Active Substance: RITUXIMAB
     Indication: Immunosuppression
     Route: 041
  6. RITUXIMAB [Suspect]
     Active Substance: RITUXIMAB
     Indication: Anti-glomerular basement membrane disease
  7. RITUXIMAB [Suspect]
     Active Substance: RITUXIMAB
     Indication: Glomerulonephritis rapidly progressive
  8. RITUXIMAB [Suspect]
     Active Substance: RITUXIMAB
     Indication: IgA nephropathy
  9. HUMAN IMMUNOGLOBULIN G [Suspect]
     Active Substance: HUMAN IMMUNOGLOBULIN G
     Indication: Immunosuppression
  10. HUMAN IMMUNOGLOBULIN G [Suspect]
     Active Substance: HUMAN IMMUNOGLOBULIN G
     Indication: Anti-glomerular basement membrane disease
  11. PIPERACILLIN SODIUM\TAZOBACTAM SODIUM [Concomitant]
     Active Substance: PIPERACILLIN SODIUM\TAZOBACTAM SODIUM
     Indication: Anti-infective therapy

REACTIONS (2)
  - Pneumocystis jirovecii pneumonia [Recovered/Resolved]
  - IgA nephropathy [Recovered/Resolved]
